FAERS Safety Report 9314908 (Version 1)
Quarter: 2013Q2

REPORT INFORMATION
  Report Type: Spontaneous
  Country: US (occurrence: US)
  Receive Date: 20130529
  Receipt Date: 20130529
  Transmission Date: 20140414
  Serious: Yes (Other)
  Sender: FDA-Public Use
  Company Number: US-FRI-1000045298

PATIENT
  Sex: Female

DRUGS (2)
  1. VIIBRYD [Suspect]
     Indication: BIPOLAR DISORDER
     Dosage: 40 MG
     Route: 048
  2. COUMADIN [Concomitant]

REACTIONS (4)
  - Pulmonary embolism [Unknown]
  - Lethargy [Unknown]
  - Amnesia [Unknown]
  - Off label use [Unknown]
